FAERS Safety Report 7765767-3 (Version None)
Quarter: 2011Q3

REPORT INFORMATION
  Report Type: 
  Country: None (occurrence: None)
  Receive Date: 20110921
  Receipt Date: 20110914
  Transmission Date: 20111222
  Serious: Yes (Other)
  Sender: FDA-Public Use
  Company Number: US-ABBOTT-11P-163-0854999-00

PATIENT
  Age: 97 Year
  Sex: Female
  Weight: 59.02 kg

DRUGS (3)
  1. CELEBREX [Suspect]
     Indication: ARTHRITIS
     Route: 048
     Dates: start: 20110825
  2. ZOLOFT [Suspect]
     Indication: DEPRESSION
     Route: 048
  3. VICODIN [Suspect]
     Indication: ARTHRITIS

REACTIONS (3)
  - BALANCE DISORDER [None]
  - DEPRESSION [None]
  - DRUG DOSE OMISSION [None]
